FAERS Safety Report 20629123 (Version 6)
Quarter: 2023Q1

REPORT INFORMATION
  Report Type: Report from Study
  Country: CA (occurrence: CA)
  Receive Date: 20220323
  Receipt Date: 20230316
  Transmission Date: 20230417
  Serious: Yes (Other)
  Sender: FDA-Public Use
  Company Number: CA-OTSUKA-2021_018105

PATIENT
  Sex: Female

DRUGS (2)
  1. CEDAZURIDINE\DECITABINE [Suspect]
     Active Substance: CEDAZURIDINE\DECITABINE
     Indication: Myelodysplastic syndrome
     Dosage: UNK,(35 MG OF DECITABINE AND 100 MG OF CEDAZURIDINE)
     Route: 065
     Dates: start: 20210426
  2. CEDAZURIDINE\DECITABINE [Suspect]
     Active Substance: CEDAZURIDINE\DECITABINE
     Dosage: 3 DF, (3 PILLS/CYCLE)
     Route: 065

REACTIONS (8)
  - Red blood cell transfusion [Unknown]
  - Malaise [Unknown]
  - Sciatica [Unknown]
  - Osteoporosis [Unknown]
  - Ill-defined disorder [Unknown]
  - Stomatitis [Unknown]
  - Fatigue [Unknown]
  - Product use issue [Unknown]
